FAERS Safety Report 9565521 (Version 2)
Quarter: 2013Q4

REPORT INFORMATION
  Report Type: Report from Study
  Country: US (occurrence: US)
  Receive Date: 20130930
  Receipt Date: 20131105
  Transmission Date: 20140711
  Serious: Yes (Hospitalization)
  Sender: FDA-Public Use
  Company Number: US-ACTELION-A-NJ2013-88901

PATIENT
  Age: 67 Year
  Sex: Female

DRUGS (24)
  1. TRACLEER [Suspect]
     Indication: PULMONARY ARTERIAL HYPERTENSION
     Dosage: 125 MG, BID
     Route: 048
     Dates: start: 200501
  2. COUMADIN [Concomitant]
     Dosage: 7.5 MG, UNK
  3. ASPIRIN [Concomitant]
     Dosage: 81 MG, UNK
  4. LASIX [Concomitant]
     Dosage: 80 MG, BID
  5. GABAPENTIN [Concomitant]
     Dosage: 300 MG, BID
  6. CARAFATE [Concomitant]
     Dosage: 1 G, QID
  7. COZAAR [Concomitant]
     Dosage: 100 MG, UNK
  8. VICTOZA [Concomitant]
     Dosage: 1.2 MG, UNK
  9. REVATIO [Concomitant]
     Dosage: 20 MG, TID
  10. REQUIP [Concomitant]
     Dosage: 15 MG, UNK
  11. ZOCOR [Concomitant]
     Dosage: 40 MG, UNK
  12. ZAROXOLYN [Concomitant]
     Dosage: 10 MG, TID
  13. MAGNESIUM [Concomitant]
     Dosage: 500 MG, UNK
  14. FOLIC ACID [Concomitant]
     Dosage: 400 MG, UNK
  15. LANTUS [Concomitant]
     Dosage: 40 MG, UNK
  16. HUMIRA [Concomitant]
  17. ZOLOFT [Concomitant]
     Dosage: 150 MG, UNK
  18. TOPROL [Concomitant]
     Dosage: 100 MG, BID
  19. ALDACTONE [Concomitant]
     Dosage: 25 MG, UNK
  20. NEXIUM [Concomitant]
     Dosage: 40 MG, BID
  21. POTASSIUM [Concomitant]
     Dosage: 60 MEQ, BID
  22. VITAMIN C [Concomitant]
     Dosage: 500 MG, UNK
  23. SYMBICORT [Concomitant]
     Dosage: 2 PUFF, BID
  24. ALBUTEROL [Concomitant]
     Dosage: UNK

REACTIONS (5)
  - Lung disorder [Not Recovered/Not Resolved]
  - Bronchiolitis [Recovering/Resolving]
  - Pneumonia [Recovering/Resolving]
  - Asthma [Recovering/Resolving]
  - Dehydration [Recovered/Resolved]
